FAERS Safety Report 6952700-7 (Version None)
Quarter: 2010Q3

REPORT INFORMATION
  Report Type: 
  Country: None (occurrence: None)
  Receive Date: 20100829
  Receipt Date: 20100513
  Transmission Date: 20110219
  Serious: No
  Sender: FDA-Public Use
  Company Number: US-ABBOTT-10P-163-0644852-00

PATIENT
  Sex: Male
  Weight: 86.714 kg

DRUGS (2)
  1. NIASPAN [Suspect]
     Indication: BLOOD CHOLESTEROL INCREASED
     Dosage: 1000MG TWICE A DAY
     Dates: start: 20080501
  2. NIASPAN [Suspect]
     Indication: BLOOD TRIGLYCERIDES

REACTIONS (1)
  - ABDOMINAL DISCOMFORT [None]
